FAERS Safety Report 15014929 (Version 2)
Quarter: 2019Q1

REPORT INFORMATION
  Report Type: Spontaneous
  Country: US (occurrence: US)
  Receive Date: 20180615
  Receipt Date: 20190227
  Transmission Date: 20190417
  Serious: Yes (Hospitalization)
  Sender: FDA-Public Use
  Company Number: US-AUROBINDO-AUR-APL-2017-39561

PATIENT

DRUGS (2)
  1. ACETYLSALICYLIC ACID [Suspect]
     Active Substance: ASPIRIN
     Indication: ANTICOAGULANT THERAPY
     Route: 065
  2. CLOPIDOGREL [Suspect]
     Active Substance: CLOPIDOGREL BISULFATE
     Indication: ANTICOAGULANT THERAPY
     Dosage: UNK
     Route: 065

REACTIONS (6)
  - Oropharyngeal pain [Recovered/Resolved]
  - Facial paralysis [Unknown]
  - Haematemesis [Recovered/Resolved]
  - Oesophageal intramural haematoma [Recovered/Resolved]
  - Vomiting [Recovered/Resolved]
  - Back pain [Recovered/Resolved]
